FAERS Safety Report 18790022 (Version 1)
Quarter: 2021Q1

REPORT INFORMATION
  Report Type: Other
  Country: US (occurrence: US)
  Receive Date: 20210125
  Receipt Date: 20210125
  Transmission Date: 20210419
  Serious: No
  Sender: FDA-Public Use
  Company Number: US-ACORDA-ACO_167063_2020

PATIENT

DRUGS (1)
  1. AMPYRA [Suspect]
     Active Substance: DALFAMPRIDINE
     Indication: PRODUCT USED FOR UNKNOWN INDICATION
     Dosage: 10 MILLIGRAM, Q 12 HRS
     Route: 048

REACTIONS (12)
  - Fall [Unknown]
  - Diarrhoea [Unknown]
  - Temperature intolerance [Unknown]
  - Therapy cessation [Recovered/Resolved]
  - Urinary tract infection [Unknown]
  - Multiple sclerosis relapse [Unknown]
  - Decreased appetite [Unknown]
  - Inappropriate schedule of product administration [Unknown]
  - Memory impairment [Unknown]
  - Pollakiuria [Unknown]
  - Depressed mood [Unknown]
  - Balance disorder [Unknown]
